FAERS Safety Report 8440049-5 (Version None)
Quarter: 2012Q2

REPORT INFORMATION
  Report Type: 
  Country: None (occurrence: None)
  Receive Date: 20120608
  Receipt Date: 20120524
  Transmission Date: 20120825
  Serious: Yes (Death, Life-Threatening, Hospitalization, Other)
  Sender: FDA-Public Use
  Company Number: 2012MPI00198

PATIENT
  Age: 71 Year

DRUGS (6)
  1. GRANISETRON HCL [Concomitant]
  2. BRENTUXIMAB VEDOTIN (BRENTUXIMAB VEDOTIN) INJECTION [Suspect]
     Indication: HODGKIN'S DISEASE
     Dosage: 1.8 MG/KG, QCYCLE, INTRAVENOUS
     Route: 042
     Dates: start: 20120227, end: 20120227
  3. RANITIDINE HCL [Concomitant]
  4. SODIUM CHLORIDE 9SODIUM CHLORIDE) [Concomitant]
  5. TAVEGIL (CLEMASTINE FUMARATE) [Concomitant]
  6. ACETAMINOPHEN [Concomitant]

REACTIONS (11)
  - CARDIOPULMONARY FAILURE [None]
  - PSEUDOMEMBRANOUS COLITIS [None]
  - RESPIRATORY FAILURE [None]
  - TACHYARRHYTHMIA [None]
  - HODGKIN'S DISEASE [None]
  - PNEUMONIA [None]
  - ILEUS [None]
  - CLOSTRIDIUM TEST POSITIVE [None]
  - CYTOMEGALOVIRUS COLITIS [None]
  - ACUTE CORONARY SYNDROME [None]
  - HYPOTENSION [None]
